FAERS Safety Report 20703396 (Version 1)
Quarter: 2022Q2

REPORT INFORMATION
  Report Type: Spontaneous
  Country: None (occurrence: CN)
  Receive Date: 20220413
  Receipt Date: 20220413
  Transmission Date: 20220721
  Serious: Yes (Hospitalization)
  Sender: FDA-Public Use
  Company Number: CN-Jiangsu Hengrui Medicine Co., Ltd.-2127664

PATIENT
  Sex: Female
  Weight: 58 kg

DRUGS (3)
  1. OXALIPLATIN [Suspect]
     Active Substance: OXALIPLATIN
     Indication: Gastric cancer
     Route: 041
     Dates: start: 20220311, end: 20220311
  2. CAPECITABINE [Suspect]
     Active Substance: CAPECITABINE
     Dates: start: 20220311
  3. TISLELIZUMAB [Suspect]
     Active Substance: TISLELIZUMAB
     Dates: start: 20220216, end: 20220216

REACTIONS (1)
  - Toxic epidermal necrolysis [Recovering/Resolving]
